FAERS Safety Report 10186366 (Version 1)
Quarter: 2014Q2

REPORT INFORMATION
  Report Type: Spontaneous
  Country: US (occurrence: US)
  Receive Date: 20140521
  Receipt Date: 20140521
  Transmission Date: 20141212
  Serious: No
  Sender: FDA-Public Use
  Company Number: US-ASTRAZENECA-2013SE47473

PATIENT
  Age: 16 Year
  Sex: Female
  Weight: 54.4 kg

DRUGS (5)
  1. PULMICORT RESPULES [Suspect]
     Indication: CHRONIC OBSTRUCTIVE PULMONARY DISEASE
     Route: 055
  2. PULMICORT RESPULES [Suspect]
     Indication: CHRONIC OBSTRUCTIVE PULMONARY DISEASE
     Route: 055
     Dates: start: 201306
  3. XOPENEX [Suspect]
     Indication: CHRONIC OBSTRUCTIVE PULMONARY DISEASE
     Route: 065
  4. XOPENEX [Suspect]
     Indication: CHRONIC OBSTRUCTIVE PULMONARY DISEASE
     Route: 055
     Dates: start: 201306
  5. TOPICAL ANTIBIOTIC [Concomitant]
     Route: 061
     Dates: start: 2012

REACTIONS (7)
  - Sputum discoloured [Unknown]
  - Acne [Unknown]
  - Chest pain [Unknown]
  - Nasopharyngitis [Unknown]
  - Throat irritation [Unknown]
  - Cough [Unknown]
  - Intentional product misuse [Unknown]
